FAERS Safety Report 18510369 (Version 2)
Quarter: 2020Q4

REPORT INFORMATION
  Report Type: Spontaneous
  Country: IN (occurrence: IN)
  Receive Date: 20201117
  Receipt Date: 20201210
  Transmission Date: 20210114
  Serious: Yes (Hospitalization, Other)
  Sender: FDA-Public Use
  Company Number: IN-CIPLA LTD.-2020IN08435

PATIENT

DRUGS (4)
  1. ARORAB LS [Concomitant]
     Indication: DYSPNOEA
     Dosage: 1 DOSAGE FORM, QD
     Route: 065
  2. ASTHALIN [Suspect]
     Active Substance: ALBUTEROL
     Indication: DYSPNOEA
     Dosage: TWO PUMPS, TWICE OR THRICE
  3. IBUPROFEN. [Concomitant]
     Active Substance: IBUPROFEN
     Indication: DYSPNOEA
     Dosage: 2 DOSAGE FORM, BID
     Route: 065
  4. ETODOLAC. [Concomitant]
     Active Substance: ETODOLAC
     Indication: DYSPNOEA
     Dosage: 1 DOSAGE FORM, QD
     Route: 065

REACTIONS (6)
  - Device malfunction [Unknown]
  - Drug effect less than expected [Not Recovered/Not Resolved]
  - Cough [Not Recovered/Not Resolved]
  - Lower respiratory tract infection [Unknown]
  - Condition aggravated [Recovered/Resolved]
  - Device breakage [Unknown]

NARRATIVE: CASE EVENT DATE: 2020
